FAERS Safety Report 18596109 (Version 37)
Quarter: 2025Q1

REPORT INFORMATION
  Report Type: Report from Study
  Country: DE (occurrence: DE)
  Receive Date: 20201209
  Receipt Date: 20250312
  Transmission Date: 20250408
  Serious: Yes (Hospitalization, Other)
  Sender: MYLAN
  Company Number: DE-ROCHE-2669047

PATIENT
  Age: 52 Year
  Sex: Female
  Weight: 62 kg

DRUGS (63)
  1. PANTOPRAZOLE [Suspect]
     Active Substance: PANTOPRAZOLE
     Indication: Product used for unknown indication
  2. PANTOPRAZOLE [Suspect]
     Active Substance: PANTOPRAZOLE
  3. PANTOPRAZOLE [Suspect]
     Active Substance: PANTOPRAZOLE
  4. OCREVUS [Suspect]
     Active Substance: OCRELIZUMAB
     Indication: Relapsing-remitting multiple sclerosis
  5. OCREVUS [Suspect]
     Active Substance: OCRELIZUMAB
     Indication: Secondary progressive multiple sclerosis
  6. OCREVUS [Suspect]
     Active Substance: OCRELIZUMAB
     Indication: Rheumatoid arthritis
  7. OCREVUS [Suspect]
     Active Substance: OCRELIZUMAB
  8. OCREVUS [Suspect]
     Active Substance: OCRELIZUMAB
  9. OCREVUS [Suspect]
     Active Substance: OCRELIZUMAB
  10. OCREVUS [Suspect]
     Active Substance: OCRELIZUMAB
  11. OCREVUS [Suspect]
     Active Substance: OCRELIZUMAB
  12. CORTISONE [Suspect]
     Active Substance: CORTISONE
     Indication: Product used for unknown indication
     Dates: start: 20200810, end: 20200813
  13. COMIRNATY (TOZINAMERAN) [Suspect]
     Active Substance: TOZINAMERAN
     Indication: COVID-19 immunisation
     Dates: start: 20210415, end: 20210415
  14. COMIRNATY (TOZINAMERAN) [Suspect]
     Active Substance: TOZINAMERAN
     Dates: start: 20210526, end: 20210526
  15. Novalgin [Concomitant]
  16. Novalgin [Concomitant]
  17. ALBUTEROL [Concomitant]
     Active Substance: ALBUTEROL
  18. ALBUTEROL [Concomitant]
     Active Substance: ALBUTEROL
  19. ALBUTEROL [Concomitant]
     Active Substance: ALBUTEROL
  20. DOMPERIDONE [Concomitant]
     Active Substance: DOMPERIDONE
  21. DOMPERIDONE [Concomitant]
     Active Substance: DOMPERIDONE
  22. DOMPERIDONE [Concomitant]
     Active Substance: DOMPERIDONE
  23. IBUPROFEN [Concomitant]
     Active Substance: IBUPROFEN
  24. IBUPROFEN [Concomitant]
     Active Substance: IBUPROFEN
  25. IBUPROFEN [Concomitant]
     Active Substance: IBUPROFEN
  26. TRIAMCINOLONE ACETONIDE [Concomitant]
     Active Substance: TRIAMCINOLONE ACETONIDE
     Indication: Muscle spasticity
     Dosage: Q3MONTHS (INTO SPINAL FLUID), START 09-APR-2020
  27. TRIAMCINOLONE ACETONIDE [Concomitant]
     Active Substance: TRIAMCINOLONE ACETONIDE
     Dosage: 100 MG, Q3MONTHS (SPINAL FLUID), 09-APR-2020
  28. TRIAMCINOLONE ACETONIDE [Concomitant]
     Active Substance: TRIAMCINOLONE ACETONIDE
  29. TRIAMCINOLONE ACETONIDE [Concomitant]
     Active Substance: TRIAMCINOLONE ACETONIDE
     Dosage: 70 MG, Q3MONTHS(ADMIN. LIQUOR CEREBROSINALIS)
     Dates: start: 201911
  30. TRIAMCINOLONE ACETONIDE [Concomitant]
     Active Substance: TRIAMCINOLONE ACETONIDE
     Dosage: 70MG, Q3MONTHS(ADMIN. INTO LIQUOR CEREBROSINALIS)
     Dates: start: 20190626, end: 20190626
  31. TRIAMCINOLONE ACETONIDE [Concomitant]
     Active Substance: TRIAMCINOLONE ACETONIDE
  32. TRIAMCINOLONE ACETONIDE [Concomitant]
     Active Substance: TRIAMCINOLONE ACETONIDE
     Dosage: 100MG,Q3MONTHS, ADMIN. INTO LIQUOR CEREBROSINALIS
     Dates: start: 20200409
  33. TRIAMCINOLONE ACETONIDE [Concomitant]
     Active Substance: TRIAMCINOLONE ACETONIDE
  34. CANNABIS SATIVA FLOWERING TOP [Concomitant]
     Active Substance: CANNABIS SATIVA FLOWERING TOP
     Dosage: QD (SEVERAL TIMES PER DAY AND IN THE NIGHT)
  35. CANNABIS SATIVA FLOWERING TOP [Concomitant]
     Active Substance: CANNABIS SATIVA FLOWERING TOP
     Dosage: QD, SEVERAL TIMES PER DAY AND IN THE NIGHT
  36. CANNABIS SATIVA FLOWERING TOP [Concomitant]
     Active Substance: CANNABIS SATIVA FLOWERING TOP
  37. CHOLECALCIFEROL [Concomitant]
     Active Substance: CHOLECALCIFEROL
     Dosage: 20000 IU, QW (1 PER WEEK EVERY 3 MONTHS)
  38. OXYCODONE [Concomitant]
     Active Substance: OXYCODONE
  39. NITROFURANTOIN [Concomitant]
     Active Substance: NITROFURANTOIN
     Indication: Product used for unknown indication
     Dosage: 100 MILLIGRAM, TID
  40. HEPARIN [Concomitant]
     Active Substance: HEPARIN SODIUM
  41. NABIXIMOLS [Concomitant]
     Active Substance: NABIXIMOLS
  42. ESTRIOL [Concomitant]
     Active Substance: ESTRIOL
     Dosage: 1 MILLIGRAM, QW (CURRENTLY PAUSED)
  43. FOLIC ACID [Concomitant]
     Active Substance: FOLIC ACID
     Dosage: 5 MILLIGRAM, QD
  44. PANTOPRAZOLE SODIUM [Concomitant]
     Active Substance: PANTOPRAZOLE SODIUM
     Indication: Product used for unknown indication
  45. PANTOPRAZOLE SODIUM [Concomitant]
     Active Substance: PANTOPRAZOLE SODIUM
     Dosage: 40 MILLIGRAM, QD
  46. XIPAMIDE [Concomitant]
     Active Substance: XIPAMIDE
  47. FOSFOMYCIN [Concomitant]
     Active Substance: FOSFOMYCIN
     Indication: Urinary tract infection
  48. FOSFOMYCIN [Concomitant]
     Active Substance: FOSFOMYCIN
  49. SULFAMETHOXAZOLE\TRIMETHOPRIM [Concomitant]
     Active Substance: SULFAMETHOXAZOLE\TRIMETHOPRIM
  50. CORTISONE [Concomitant]
     Active Substance: CORTISONE
     Indication: Premedication
  51. CORTISONE [Concomitant]
     Active Substance: CORTISONE
     Dosage: 100 MILLIGRAM, Q3MONTHS
  52. CORTISONE [Concomitant]
     Active Substance: CORTISONE
  53. INFLUENZA VIRUS VACCINE [Concomitant]
     Active Substance: INFLUENZA VIRUS VACCINE
     Indication: Product used for unknown indication
     Dates: start: 20181018, end: 20181018
  54. DEMANNOSE [Concomitant]
     Active Substance: DEMANNOSE
     Dosage: UNK, QD
  55. FORMOTEROL FUMARATE [Concomitant]
     Active Substance: FORMOTEROL FUMARATE
  56. CEFUROXIME [Concomitant]
     Active Substance: CEFUROXIME
     Indication: Nasopharyngitis
     Dates: start: 20190227, end: 20190301
  57. RAMIPRIL [Concomitant]
     Active Substance: RAMIPRIL
     Dosage: 1.25 MILLIGRAM, BID
  58. RAMIPRIL [Concomitant]
     Active Substance: RAMIPRIL
     Dosage: 1.25 MILLIGRAM, BID (1-0-1)
     Dates: start: 20190701
  59. RAMIPRIL [Concomitant]
     Active Substance: RAMIPRIL
  60. RAMIPRIL [Concomitant]
     Active Substance: RAMIPRIL
     Dosage: 1.25 MILLIGRAM, QD (IN THE EVENING)
  61. COTRIMOXAZOLE [Concomitant]
     Active Substance: SULFAMETHOXAZOLE\TRIMETHOPRIM
  62. LACTIC ACID, DL-\SODIUM LACTATE [Concomitant]
     Active Substance: LACTIC ACID, DL-\SODIUM LACTATE
  63. LACTIC ACID, DL-\SODIUM LACTATE [Concomitant]
     Active Substance: LACTIC ACID, DL-\SODIUM LACTATE

REACTIONS (107)
  - Gastritis erosive [Recovered/Resolved]
  - Cataract [Not Recovered/Not Resolved]
  - Cystitis [Not Recovered/Not Resolved]
  - Urinary tract infection bacterial [Recovered/Resolved]
  - Multiple sclerosis relapse [Recovered/Resolved]
  - Fracture [Recovered/Resolved]
  - Cardiac failure [Not Recovered/Not Resolved]
  - Cushing^s syndrome [Not Recovered/Not Resolved]
  - Urogenital fistula [Recovered/Resolved]
  - Dry skin [Recovered/Resolved]
  - Muscle spasticity [Not Recovered/Not Resolved]
  - Uterine enlargement [Recovered/Resolved]
  - Initial insomnia [Not Recovered/Not Resolved]
  - Alopecia [Recovered/Resolved]
  - Weight increased [Not Recovered/Not Resolved]
  - Fluid retention [Recovered/Resolved]
  - Periorbital swelling [Recovered/Resolved]
  - Body fat disorder [Not Recovered/Not Resolved]
  - Irritability [Not Recovered/Not Resolved]
  - Muscular weakness [Not Recovered/Not Resolved]
  - Bone pain [Not Recovered/Not Resolved]
  - Calcinosis [Recovered/Resolved]
  - Vaccination site warmth [Recovered/Resolved]
  - Vaccination site erythema [Recovered/Resolved]
  - Bone density increased [Not Recovered/Not Resolved]
  - Gait disturbance [Not Recovered/Not Resolved]
  - Pain in extremity [Recovered/Resolved]
  - Mobility decreased [Recovered/Resolved]
  - B-lymphocyte count decreased [Not Recovered/Not Resolved]
  - Endometrial thickening [Recovering/Resolving]
  - Cystitis noninfective [Recovered/Resolved]
  - Arthralgia [Recovered/Resolved]
  - Diarrhoea [Recovered/Resolved]
  - Rash [Recovered/Resolved]
  - Blood cholesterol increased [Not Recovered/Not Resolved]
  - Dizziness [Recovered/Resolved]
  - Asthenia [Not Recovered/Not Resolved]
  - Paraesthesia [Not Recovered/Not Resolved]
  - Seborrhoeic keratosis [Unknown]
  - Migraine [Unknown]
  - Osteoporosis [Not Recovered/Not Resolved]
  - Chronic gastritis [Not Recovered/Not Resolved]
  - SARS-CoV-2 antibody test negative [Not Recovered/Not Resolved]
  - Condition aggravated [Not Recovered/Not Resolved]
  - Insomnia [Not Recovered/Not Resolved]
  - Gamma-glutamyltransferase increased [Recovered/Resolved]
  - Blood pressure increased [Recovered/Resolved]
  - Urine odour abnormal [Recovering/Resolving]
  - Platelet count decreased [Recovered/Resolved]
  - Chronic gastritis [Not Recovered/Not Resolved]
  - Platelet count increased [Recovered/Resolved]
  - Wound [Recovered/Resolved]
  - Vitamin D decreased [Recovered/Resolved]
  - Throat irritation [Recovered/Resolved]
  - Tooth fracture [Recovered/Resolved]
  - Dyspepsia [Recovered/Resolved]
  - Chills [Unknown]
  - Vulvovaginal dryness [Unknown]
  - Oedema [Recovered/Resolved]
  - Depression [Recovered/Resolved]
  - Fatigue [Recovered/Resolved]
  - Inappropriate affect [Recovered/Resolved]
  - Abdominal distension [Not Recovered/Not Resolved]
  - Erythema [Recovered/Resolved]
  - Influenza like illness [Recovered/Resolved]
  - Constipation [Recovered/Resolved]
  - Pain [Not Recovered/Not Resolved]
  - Eyelid ptosis [Recovered/Resolved]
  - Skin induration [Recovered/Resolved]
  - Fall [Unknown]
  - Feeling hot [Recovered/Resolved]
  - Oral discomfort [Recovered/Resolved]
  - Listless [Recovered/Resolved]
  - Back pain [Not Recovered/Not Resolved]
  - Emotional distress [Recovered/Resolved]
  - Depressed mood [Not Recovered/Not Resolved]
  - Low density lipoprotein increased [Not Recovered/Not Resolved]
  - Meningism [Recovered/Resolved]
  - Anal incontinence [Recovered/Resolved]
  - Sinus disorder [Recovered/Resolved]
  - Sensation of foreign body [Recovered/Resolved]
  - Ligament sprain [Recovered/Resolved]
  - Illness [Recovered/Resolved]
  - Vision blurred [Not Recovered/Not Resolved]
  - Dysstasia [Not Recovered/Not Resolved]
  - Oral herpes [Recovered/Resolved]
  - Anal inflammation [Recovered/Resolved]
  - Folate deficiency [Recovered/Resolved]
  - Urinary tract infection [Recovered/Resolved]
  - Intestinal atony [Unknown]
  - Pain [Recovered/Resolved]
  - Nasopharyngitis [Recovered/Resolved]
  - Lymphocyte count decreased [Recovered/Resolved]
  - Pyrexia [Unknown]
  - Faeces soft [Recovered/Resolved]
  - B-lymphocyte count abnormal [Recovered/Resolved]
  - Throat tightness [Recovered/Resolved]
  - Oropharyngeal pain [Recovered/Resolved]
  - Bone density decreased [Not Recovered/Not Resolved]
  - Muscle twitching [Recovered/Resolved]
  - Inappropriate schedule of product administration [Unknown]
  - Off label use [Unknown]
  - Intervertebral disc protrusion [Recovered/Resolved]
  - Flatulence [Recovered/Resolved]
  - Sleep disorder [Not Recovered/Not Resolved]
  - Bladder irritation [Not Recovered/Not Resolved]
  - Extraskeletal ossification [Not Recovered/Not Resolved]

NARRATIVE: CASE EVENT DATE: 20180523
